FAERS Safety Report 7676753-6 (Version None)
Quarter: 2011Q3

REPORT INFORMATION
  Report Type: 
  Country: None (occurrence: None)
  Receive Date: 20110811
  Receipt Date: 20110808
  Transmission Date: 20111222
  Serious: Yes (Other)
  Sender: FDA-Public Use
  Company Number: PL-TEVA-295363ISR

PATIENT
  Sex: Female

DRUGS (2)
  1. ALCOHOL [Interacting]
  2. RANITIDINE [Suspect]

REACTIONS (6)
  - ALCOHOL INTERACTION [None]
  - MALAISE [None]
  - DRUG ABUSE [None]
  - DIZZINESS [None]
  - CONFUSIONAL STATE [None]
  - DEPRESSED LEVEL OF CONSCIOUSNESS [None]
